FAERS Safety Report 5063060-3 (Version None)
Quarter: 2006Q3

REPORT INFORMATION
  Report Type: 
  Country: None (occurrence: None)
  Receive Date: 20060725
  Receipt Date: 20060725
  Transmission Date: 20061208
  Serious: Yes (Hospitalization)
  Sender: FDA-Public Use
  Company Number: None

PATIENT
  Age: 83 Year
  Sex: Female

DRUGS (1)
  1. CLARITHROMYCIN [Suspect]

REACTIONS (16)
  - ASTHENIA [None]
  - BLOOD CREATININE INCREASED [None]
  - BLOOD PRESSURE DECREASED [None]
  - BLOOD UREA INCREASED [None]
  - DIARRHOEA [None]
  - DYSGEUSIA [None]
  - FAECES DISCOLOURED [None]
  - FALL [None]
  - MUCOSAL DRYNESS [None]
  - NAUSEA [None]
  - OCCULT BLOOD POSITIVE [None]
  - ORAL INTAKE REDUCED [None]
  - PRODUCTIVE COUGH [None]
  - SPUTUM DISCOLOURED [None]
  - VOMITING [None]
  - WEIGHT DECREASED [None]
